FAERS Safety Report 13211189 (Version 2)
Quarter: 2017Q1

REPORT INFORMATION
  Report Type: Spontaneous
  Country: US (occurrence: US)
  Receive Date: 20170210
  Receipt Date: 20170215
  Transmission Date: 20170428
  Serious: No
  Sender: FDA-Public Use
  Company Number: US-BAYER-2017-023142

PATIENT
  Sex: Male

DRUGS (1)
  1. MIRENA [Suspect]
     Active Substance: LEVONORGESTREL
     Dosage: 20 MCG/24HR, CONT
     Route: 015

REACTIONS (9)
  - Procedural pain [None]
  - Insomnia [None]
  - Uterine pain [None]
  - Activities of daily living impaired [None]
  - Abdominal distension [None]
  - Medical device discomfort [None]
  - Abdominal pain lower [None]
  - Loss of libido [None]
  - Penile pain [None]
